FAERS Safety Report 7126499-8 (Version None)
Quarter: 2010Q4

REPORT INFORMATION
  Report Type: 
  Country: None (occurrence: None)
  Receive Date: 20101129
  Receipt Date: 20101123
  Transmission Date: 20110411
  Serious: Yes (Other)
  Sender: FDA-Public Use
  Company Number: PHHY2010US76412

PATIENT
  Age: 47 Year
  Sex: Female
  Weight: 142 kg

DRUGS (1)
  1. ILARIS [Suspect]
     Indication: SCHNITZLER'S SYNDROME
     Dosage: 150 MG, UNK
     Route: 058
     Dates: start: 20100410

REACTIONS (2)
  - ARTHRALGIA [None]
  - MONOCLONAL GAMMOPATHY [None]
